FAERS Safety Report 5658316-7 (Version None)
Quarter: 2008Q1

REPORT INFORMATION
  Report Type: 
  Country: None (occurrence: None)
  Receive Date: 20080310
  Receipt Date: 20070125
  Transmission Date: 20080703
  Serious: No
  Sender: FDA-Public Use
  Company Number: US-BAYER-200710295BCC

PATIENT
  Age: 49 Year
  Sex: Male
  Weight: 159 kg

DRUGS (6)
  1. ALEVE [Suspect]
     Indication: BACK PAIN
     Dosage: TOTAL DAILY DOSE: 220 MG  UNIT DOSE: 220 MG
     Route: 048
  2. ALEVE [Suspect]
     Dosage: TOTAL DAILY DOSE: 440 MG  UNIT DOSE: 220 MG
     Route: 048
     Dates: start: 20070101
  3. DARVOCET [Concomitant]
  4. NORVASC [Concomitant]
  5. LIPITOR [Concomitant]
  6. ZESTRIL [Concomitant]

REACTIONS (2)
  - BACK PAIN [None]
  - INSOMNIA [None]
